FAERS Safety Report 9557831 (Version 1)
Quarter: 2013Q3

REPORT INFORMATION
  Report Type: Spontaneous
  Country: US (occurrence: None)
  Receive Date: 20130724
  Receipt Date: 20130724
  Transmission Date: 20140515
  Serious: Yes (Other)
  Sender: FDA-Public Use
  Company Number: PHEH2012US025797

PATIENT
  Sex: Male

DRUGS (1)
  1. GILENYA [Suspect]
     Indication: RELAPSING-REMITTING MULTIPLE SCLEROSIS
     Dosage: RELAPSING-REMITTING MULTIPLE SCLEROSIS (RELAPSING-REMITTING MULTIPLE SCLEROSIS)
     Route: 048
     Dates: start: 20110110

REACTIONS (1)
  - Drug prescribing error [None]
